FAERS Safety Report 6843042-9 (Version None)
Quarter: 2010Q3

REPORT INFORMATION
  Report Type: 
  Country: None (occurrence: None)
  Receive Date: 20100712
  Receipt Date: 20100625
  Transmission Date: 20110219
  Serious: Yes (Disabling, Other)
  Sender: FDA-Public Use
  Company Number: ACO_01242_2010

PATIENT
  Sex: Female
  Weight: 113.3993 kg

DRUGS (16)
  1. AMPYRA [Suspect]
     Indication: GAIT DISTURBANCE
     Dosage: (10 MG BID ORAL)
     Route: 048
     Dates: start: 20100525, end: 20100624
  2. FISH OIL [Concomitant]
  3. MULTI-VITAMINS [Concomitant]
  4. CALCIUM 600 + D [Concomitant]
  5. VITAMIN D [Concomitant]
  6. GABAPENTIN [Concomitant]
  7. BACLOFEN [Concomitant]
  8. OXYBUTYNIN CHLORIDE [Concomitant]
  9. DICLOFENAC [Concomitant]
  10. BETASERON [Concomitant]
  11. LEVOTHYROXINE SODIUM [Concomitant]
  12. OMEPRAZOLE [Concomitant]
  13. KELNOR [Concomitant]
  14. METAMUCIL /00091301/ [Concomitant]
  15. CLARITIN-D [Concomitant]
  16. PROAIR HFA [Concomitant]

REACTIONS (6)
  - CHILLS [None]
  - FATIGUE [None]
  - HEADACHE [None]
  - MYALGIA [None]
  - TONGUE BITING [None]
  - TONIC CLONIC MOVEMENTS [None]
